FAERS Safety Report 10235377 (Version 1)
Quarter: 2014Q2

REPORT INFORMATION
  Report Type: Spontaneous
  Country: US (occurrence: US)
  Receive Date: 20140613
  Receipt Date: 20140613
  Transmission Date: 20141212
  Serious: No
  Sender: FDA-Public Use
  Company Number: US-PFIZER INC-2014160798

PATIENT
  Age: 51 Year
  Sex: Female
  Weight: 57.6 kg

DRUGS (2)
  1. LEVOXYL [Suspect]
     Indication: HYPOTHYROIDISM
     Dosage: 0.088 MG, 1X/DAY
     Route: 048
     Dates: end: 2013
  2. CALCIUM CARBONATE [Concomitant]
     Indication: DYSPEPSIA
     Dosage: UNK

REACTIONS (1)
  - Abdominal discomfort [Unknown]
